FAERS Safety Report 25641676 (Version 1)
Quarter: 2025Q3

REPORT INFORMATION
  Report Type: Spontaneous
  Country: VN (occurrence: VN)
  Receive Date: 20250804
  Receipt Date: 20250804
  Transmission Date: 20251020
  Serious: Yes (Other)
  Sender: NOVARTIS
  Company Number: VN-002147023-NVSC2025VN122473

PATIENT
  Sex: Female

DRUGS (3)
  1. RIBOCICLIB [Suspect]
     Active Substance: RIBOCICLIB
     Indication: Breast cancer
     Route: 065
  2. LETROZOLE [Suspect]
     Active Substance: LETROZOLE
     Indication: Breast cancer
     Route: 065
  3. GOSERELIN [Concomitant]
     Active Substance: GOSERELIN
     Indication: Breast cancer
     Route: 065

REACTIONS (2)
  - Granulocytopenia [Unknown]
  - Therapy partial responder [Unknown]
